FAERS Safety Report 7095314-3 (Version None)
Quarter: 2010Q4

REPORT INFORMATION
  Report Type: 
  Country: None (occurrence: None)
  Receive Date: 20101111
  Receipt Date: 20101030
  Transmission Date: 20110411
  Serious: Yes (Death, Hospitalization, Other)
  Sender: FDA-Public Use
  Company Number: IT-BAYER-201044899GPV

PATIENT
  Age: 70 Year
  Sex: Female

DRUGS (5)
  1. NEXAVAR [Suspect]
     Indication: HEPATIC NEOPLASM MALIGNANT
     Route: 048
     Dates: start: 20100408, end: 20100701
  2. KANRENOL [Concomitant]
     Route: 048
     Dates: start: 20100408
  3. LASIX [Concomitant]
     Route: 048
     Dates: start: 20100408
  4. ESOPRAL [Concomitant]
     Route: 048
     Dates: start: 20100408
  5. KONAKION [Concomitant]
     Route: 048
     Dates: start: 20100615

REACTIONS (2)
  - ANAEMIA [None]
  - HEPATIC FUNCTION ABNORMAL [None]
